FAERS Safety Report 16828075 (Version 3)
Quarter: 2019Q4

REPORT INFORMATION
  Report Type: Report from Study
  Country: US (occurrence: US)
  Receive Date: 20190919
  Receipt Date: 20191115
  Transmission Date: 20200122
  Serious: Yes (Other)
  Sender: FDA-Public Use
  Company Number: US-JNJFOC-20190632764

PATIENT
  Sex: Female

DRUGS (11)
  1. IMBRUVICA [Suspect]
     Active Substance: IBRUTINIB
     Indication: NON-HODGKIN^S LYMPHOMA
     Dosage: 420 MG, QD
     Route: 048
     Dates: start: 20190213
  2. RALOXIFENE. [Concomitant]
     Active Substance: RALOXIFENE
  3. VITAMIN C [Concomitant]
     Active Substance: ASCORBIC ACID
  4. B-COMPLEX                          /00003501/ [Concomitant]
     Active Substance: CYANOCOBALAMIN\DEXPANTHENOL\NIACINAMIDE\PYRIDOXINE HYDROCHLORIDE\RIBOFLAVIN 5^-PHOSPHATE SODIUM\THIAMINE HYDROCHLORIDE\VITAMIN B COMPLEX
  5. CALCIUM                            /00060701/ [Concomitant]
     Active Substance: CALCIUM
  6. VALSARTAN. [Concomitant]
     Active Substance: VALSARTAN
  7. CYANOCOBALAMIN. [Concomitant]
     Active Substance: CYANOCOBALAMIN
  8. CHOLECALCIFEROL [Concomitant]
     Active Substance: CHOLECALCIFEROL
  9. PROTONIX                           /00661201/ [Concomitant]
     Active Substance: OMEPRAZOLE
  10. OMEPRAZOLE. [Concomitant]
     Active Substance: OMEPRAZOLE
  11. CETIRIZINE HCL [Concomitant]
     Active Substance: CETIRIZINE HYDROCHLORIDE

REACTIONS (12)
  - Blindness unilateral [Unknown]
  - Abdominal discomfort [Unknown]
  - Macular degeneration [Unknown]
  - Bone pain [Unknown]
  - Peripheral swelling [Recovering/Resolving]
  - Foreign body sensation in eyes [Not Recovered/Not Resolved]
  - Increased tendency to bruise [Unknown]
  - Muscle spasms [Recovering/Resolving]
  - Fatigue [Unknown]
  - Myalgia [Unknown]
  - Joint swelling [Unknown]
  - Contusion [Unknown]
